FAERS Safety Report 24714060 (Version 1)
Quarter: 2024Q4

REPORT INFORMATION
  Report Type: Report from Study
  Country: JP (occurrence: JP)
  Receive Date: 20241209
  Receipt Date: 20241209
  Transmission Date: 20250115
  Serious: Yes (Death, Other)
  Sender: BRISTOL-MYERS SQUIBB COMPANY
  Company Number: JP-BRISTOL-MYERS SQUIBB COMPANY-2024-189187

PATIENT
  Age: 58 Year
  Sex: Female
  Weight: 44.6 kg

DRUGS (3)
  1. BREYANZI [Suspect]
     Active Substance: LISOCABTAGENE MARALEUCEL
     Indication: High-grade B-cell lymphoma
     Dosage: TOTAL NUMBER OF CELLS ADMINISTERED: 100X10^6, TYPE OF ADMINISTERED CELLS: CD4-POSITIVE LYMPHOCYTES 5
     Route: 042
     Dates: start: 20231205, end: 20231205
  2. CYCLOPHOSPHAMIDE [Concomitant]
     Active Substance: CYCLOPHOSPHAMIDE
     Indication: High-grade B-cell lymphoma
     Dosage: TOTAL DOSE 900 MG/M2
     Dates: start: 20231201
  3. FLUDARABINE [Concomitant]
     Active Substance: FLUDARABINE PHOSPHATE
     Indication: High-grade B-cell lymphoma
     Dosage: TOTAL DOSE 90 MG/M2
     Dates: start: 20231201

REACTIONS (11)
  - Respiratory failure [Fatal]
  - Cytokine release syndrome [Not Recovered/Not Resolved]
  - Malignant neoplasm progression [Fatal]
  - Neurotoxicity [Not Recovered/Not Resolved]
  - Hypotension [Not Recovered/Not Resolved]
  - Alanine aminotransferase increased [Not Recovered/Not Resolved]
  - Aspartate aminotransferase increased [Not Recovered/Not Resolved]
  - Neutrophil count decreased [Unknown]
  - Lymphocyte count decreased [Unknown]
  - Haemoglobin decreased [Unknown]
  - Platelet count decreased [Unknown]

NARRATIVE: CASE EVENT DATE: 20231206
